FAERS Safety Report 5154962-8 (Version None)
Quarter: 2006Q4

REPORT INFORMATION
  Report Type: 
  Country: None (occurrence: None)
  Receive Date: 20061121
  Receipt Date: 20060911
  Transmission Date: 20070319
  Serious: Yes (Death, Hospitalization)
  Sender: FDA-Public Use
  Company Number: FR-BAYER-200610879BFR

PATIENT
  Age: 64 Year
  Sex: Male
  Weight: 88 kg

DRUGS (6)
  1. NEXAVAR [Suspect]
     Indication: METASTATIC RENAL CELL CARCINOMA
     Dosage: TOTAL DAILY DOSE: 800 MG  UNIT DOSE: 400 MG
     Route: 048
     Dates: start: 20060718, end: 20060919
  2. NEXAVAR [Suspect]
     Dosage: UNIT DOSE: 400 MG
     Route: 048
     Dates: start: 20060924, end: 20060925
  3. MEDROL [Concomitant]
     Indication: METASTASES TO CENTRAL NERVOUS SYSTEM
  4. AVLOCARDYL [Concomitant]
     Indication: UNEVALUABLE EVENT
     Dates: end: 20060901
  5. NEURONTIN [Concomitant]
     Indication: PAIN
     Dates: end: 20060920
  6. RIVOTRIL [Concomitant]
     Indication: PAIN
     Dates: end: 20060920

REACTIONS (5)
  - ALOPECIA [None]
  - CONFUSIONAL STATE [None]
  - CYTOLYTIC HEPATITIS [None]
  - FATIGUE [None]
  - HALLUCINATION [None]
